FAERS Safety Report 9848910 (Version 2)
Quarter: 2014Q1

REPORT INFORMATION
  Report Type: Report from Study
  Country: JP (occurrence: JP)
  Receive Date: 20140128
  Receipt Date: 20140128
  Transmission Date: 20141002
  Serious: Yes (Hospitalization, Other)
  Sender: FDA-Public Use
  Company Number: JP-PFIZER INC-2010151398

PATIENT
  Age: 83 Year
  Sex: Male
  Weight: 55 kg

DRUGS (21)
  1. AXITINIB [Suspect]
     Indication: METASTATIC RENAL CELL CARCINOMA
     Dosage: 5 MG, 2X/DAY
     Route: 048
     Dates: start: 20100122, end: 20100328
  2. AXITINIB [Suspect]
     Dosage: 3 MG, 2X/DAY
     Route: 048
     Dates: start: 20100329, end: 20100506
  3. AXITINIB [Suspect]
     Dosage: 2 MG, 2X/DAY
     Route: 048
     Dates: start: 20100513, end: 20100624
  4. AXITINIB [Suspect]
     Dosage: 1 MG, 2X/DAY
     Route: 048
     Dates: start: 20100625, end: 20101123
  5. ATELEC [Concomitant]
     Indication: HYPERTENSION
     Dosage: 20 MG, 1X/DAY
     Route: 048
     Dates: start: 20090210
  6. IRBESARTAN [Concomitant]
     Indication: HYPERTENSION
     Dosage: 50 MG, 1X/DAY
     Route: 048
     Dates: start: 20100412
  7. THYRADIN S [Concomitant]
     Indication: HYPOTHYROIDISM
     Dosage: 100 UG, 1X/DAY
     Route: 048
     Dates: start: 20101028
  8. BAYASPIRIN [Concomitant]
     Indication: THROMBOSIS PROPHYLAXIS
     Dosage: 100 MG, 1X/DAY
     Route: 048
  9. LIPITOR [Concomitant]
     Indication: HYPERLIPIDAEMIA
     Dosage: 5 MG, 1X/DAY
     Route: 048
     Dates: start: 20090407
  10. HICEE [Concomitant]
     Indication: PURPURA
     Dosage: 1000 MG, 1X/DAY
     Route: 048
     Dates: start: 20100927
  11. ZYLORIC ^GLAXO WELLCOME^ [Concomitant]
     Indication: HYPERURICAEMIA
     Dosage: 100 MG, 1X/DAY
     Route: 048
  12. FLIVAS [Concomitant]
     Indication: DYSURIA
     Dosage: 50 MG, 1X/DAY
     Route: 048
  13. HIRUDOID [Concomitant]
     Indication: PRURITUS
     Dosage: UNK
     Route: 061
     Dates: start: 20090418
  14. ANTEBATE [Concomitant]
     Indication: PRURITUS
     Dosage: UNK
     Route: 061
     Dates: start: 20050808
  15. PATANOL [Concomitant]
     Indication: SEASONAL ALLERGY
     Dosage: UNK
     Route: 047
     Dates: start: 20100309
  16. TOWK [Concomitant]
     Indication: NASAL CONGESTION
     Dosage: UNK
     Route: 045
     Dates: start: 20100412
  17. FLUNASE /JPN/ [Concomitant]
     Indication: NASAL CONGESTION
     Dosage: UNK
     Route: 045
     Dates: start: 20100426
  18. PARIET [Concomitant]
     Indication: PROPHYLAXIS
     Dosage: UNK
     Route: 048
     Dates: start: 20100705
  19. CALCIUM POLYSTYRENE SULFONATE [Concomitant]
     Indication: HYPERKALAEMIA
     Dosage: UNK
     Route: 048
     Dates: start: 20100823
  20. WARFARIN [Concomitant]
     Indication: THROMBOSIS PROPHYLAXIS
     Dosage: 1 MG, 1X/DAY
     Route: 048
  21. PL [Concomitant]
     Indication: COUGH
     Dosage: 3 G, 1X/DAY
     Route: 048

REACTIONS (2)
  - Atrial flutter [Recovered/Resolved]
  - Right ventricular failure [Recovering/Resolving]
